FAERS Safety Report 6380403-9 (Version None)
Quarter: 2009Q3

REPORT INFORMATION
  Report Type: 
  Country: None (occurrence: None)
  Receive Date: 20090929
  Receipt Date: 20090922
  Transmission Date: 20100115
  Serious: Yes (Death, Hospitalization, Other)
  Sender: FDA-Public Use
  Company Number: US-BAYER-200920558NA

PATIENT
  Age: 45 Year
  Sex: Female

DRUGS (12)
  1. SORAFENIB [Suspect]
     Indication: HEPATIC NEOPLASM MALIGNANT
     Dosage: TOTAL DAILY DOSE: 800 MG  UNIT DOSE: 200 MG
     Route: 048
     Dates: start: 20090407, end: 20090421
  2. CITRACAL [Concomitant]
     Dosage: TOTAL DAILY DOSE: 950 MG
     Route: 048
  3. CALCITRIOL [Concomitant]
     Dosage: TOTAL DAILY DOSE: 0.25 ?G
     Route: 048
  4. CIPROFLAXACIN [Concomitant]
     Dosage: TOTAL DAILY DOSE: 500 MG
     Route: 048
  5. LASIX [Concomitant]
  6. LACTULOSE [Concomitant]
     Dosage: TOTAL DAILY DOSE: 90 ML
     Route: 048
  7. MAGNESIUM SULFATE [Concomitant]
  8. ALDACTONE [Concomitant]
  9. RIFAXIMIN [Concomitant]
     Dosage: TOTAL DAILY DOSE: 1200 MG
     Route: 048
  10. ZINC SULFATE [Concomitant]
  11. PREVACID [Concomitant]
  12. FOLIC ACID [Concomitant]
     Dosage: TOTAL DAILY DOSE: 1 MG
     Route: 048

REACTIONS (7)
  - ACUTE HEPATIC FAILURE [None]
  - HEPATIC ENCEPHALOPATHY [None]
  - HEPATIC FAILURE [None]
  - HEPATORENAL SYNDROME [None]
  - LIVER DISORDER [None]
  - RENAL FAILURE ACUTE [None]
  - URINARY TRACT INFECTION [None]
